FAERS Safety Report 4632813-5 (Version None)
Quarter: 2005Q2

REPORT INFORMATION
  Report Type: 
  Country: None (occurrence: None)
  Receive Date: 20050412
  Receipt Date: 20050405
  Transmission Date: 20051028
  Serious: Yes (Hospitalization)
  Sender: FDA-Public Use
  Company Number: 200511222FR

PATIENT
  Age: 88 Year
  Sex: Female

DRUGS (4)
  1. LASILIX [Suspect]
     Route: 048
  2. CELECTOL [Suspect]
     Route: 048
  3. DUPHALAC [Suspect]
     Route: 048
  4. FLECAINE [Concomitant]
     Route: 048

REACTIONS (11)
  - ATRIAL FIBRILLATION [None]
  - BLOOD ALBUMIN DECREASED [None]
  - BLOOD CREATININE DECREASED [None]
  - BLOOD GLUCOSE DECREASED [None]
  - BLOOD SODIUM DECREASED [None]
  - BLOOD UREA DECREASED [None]
  - BRADYCARDIA [None]
  - CYTOLYTIC HEPATITIS [None]
  - DEHYDRATION [None]
  - RENAL FAILURE ACUTE [None]
  - SOMNOLENCE [None]
